FAERS Safety Report 9723002 (Version 3)
Quarter: 2013Q4

REPORT INFORMATION
  Report Type: Spontaneous
  Country: JP (occurrence: JP)
  Receive Date: 20131202
  Receipt Date: 20131209
  Transmission Date: 20140711
  Serious: Yes (Death, Hospitalization)
  Sender: FDA-Public Use
  Company Number: JP-B.I. PHARMACEUTICALS,INC./RIDGEFIELD-2008-BP-02678NB

PATIENT
  Age: 78 Year
  Sex: Female

DRUGS (4)
  1. BI-SIFROL [Suspect]
     Indication: PARKINSON^S DISEASE
     Route: 048
     Dates: end: 20080221
  2. FP / SELEGILINE HYDROCHLORIDE [Concomitant]
     Indication: PARKINSON^S DISEASE
     Route: 048
  3. NEODOPASTON / LEVODOPA_CARBIDOPA [Concomitant]
     Indication: PARKINSON^S DISEASE
     Route: 048
  4. DIOVAN [Concomitant]
     Indication: HYPERTENSION
     Route: 048

REACTIONS (2)
  - Death [Fatal]
  - Interstitial lung disease [Unknown]
